FAERS Safety Report 13580287 (Version 1)
Quarter: 2017Q2

REPORT INFORMATION
  Report Type: Report from Study
  Country: PR (occurrence: PR)
  Receive Date: 20170525
  Receipt Date: 20170525
  Transmission Date: 20170830
  Serious: Yes (Other)
  Sender: FDA-Public Use
  Company Number: PR-BIOGEN-2017BI00407430

PATIENT
  Age: 24 Year
  Sex: Female
  Weight: 95.34 kg

DRUGS (1)
  1. ZINBRYTA [Suspect]
     Active Substance: DACLIZUMAB
     Indication: MULTIPLE SCLEROSIS
     Route: 065

REACTIONS (3)
  - Swollen tongue [Unknown]
  - Dyspnoea [Unknown]
  - Dysphagia [Unknown]

NARRATIVE: CASE EVENT DATE: 20170509
